FAERS Safety Report 12254738 (Version 30)
Quarter: 2016Q4

REPORT INFORMATION
  Report Type: Report from Study
  Country: AU (occurrence: AU)
  Receive Date: 20160411
  Receipt Date: 20161227
  Transmission Date: 20170207
  Serious: Yes (Other)
  Sender: FDA-Public Use
  Company Number: PHHY2014AU128881

PATIENT
  Age: 62 Year
  Sex: Male

DRUGS (9)
  1. SANDOSTATIN LAR DEPOT [Suspect]
     Active Substance: OCTREOTIDE ACETATE
     Indication: NEUROENDOCRINE TUMOUR
     Dosage: 60 MG, UNK
     Route: 030
     Dates: start: 201403
  2. METHOTREXATE. [Suspect]
     Active Substance: METHOTREXATE
     Indication: ARTHRITIS
     Dosage: UNK
     Route: 065
  3. SANDOSTATIN [Suspect]
     Active Substance: OCTREOTIDE ACETATE
     Indication: NEUROENDOCRINE TUMOUR
     Dosage: UNK
     Route: 058
  4. SANDOSTATIN LAR DEPOT [Suspect]
     Active Substance: OCTREOTIDE ACETATE
     Dosage: 30 MG, UNK
     Route: 030
  5. SANDOSTATIN LAR DEPOT [Suspect]
     Active Substance: OCTREOTIDE ACETATE
     Dosage: 30 MG, UNK
     Route: 030
  6. SANDOSTATIN LAR DEPOT [Suspect]
     Active Substance: OCTREOTIDE ACETATE
     Dosage: 30 MG, BIW
     Route: 030
  7. SANDOSTATIN LAR DEPOT [Suspect]
     Active Substance: OCTREOTIDE ACETATE
     Dosage: 30 MG, UNK
     Route: 030
  8. SANDOSTATIN LAR DEPOT [Suspect]
     Active Substance: OCTREOTIDE ACETATE
     Dosage: 60 MG, UNK
     Route: 030
     Dates: start: 20141024
  9. SANDOSTATIN LAR DEPOT [Suspect]
     Active Substance: OCTREOTIDE ACETATE
     Dosage: 30 MG, TIW (PER 3 WEEKS)
     Route: 030
     Dates: start: 20150724

REACTIONS (33)
  - Accident [Recovering/Resolving]
  - Flushing [Recovered/Resolved]
  - Contusion [Recovered/Resolved]
  - Musculoskeletal pain [Unknown]
  - Shoulder deformity [Unknown]
  - Palpitations [Unknown]
  - Nausea [Recovered/Resolved]
  - Laceration [Recovering/Resolving]
  - Pain in extremity [Unknown]
  - Injection site mass [Unknown]
  - Diarrhoea [Not Recovered/Not Resolved]
  - Nausea [Unknown]
  - Limb injury [Unknown]
  - Malaise [Recovered/Resolved]
  - Blood pressure fluctuation [Unknown]
  - Bone lesion [Not Recovered/Not Resolved]
  - Peripheral swelling [Unknown]
  - Neck mass [Unknown]
  - Malaise [Unknown]
  - Abdominal pain [Not Recovered/Not Resolved]
  - Pain [Recovered/Resolved]
  - Metastases to oesophagus [Not Recovered/Not Resolved]
  - Skin lesion [Not Recovered/Not Resolved]
  - Abdominal pain [Recovered/Resolved]
  - Diverticulitis [Unknown]
  - Metastases to abdominal wall [Unknown]
  - Psoriasis [Recovering/Resolving]
  - Muscle spasms [Not Recovered/Not Resolved]
  - Cyst [Unknown]
  - Flushing [Unknown]
  - Malignant neoplasm progression [Not Recovered/Not Resolved]
  - Fall [Recovered/Resolved]
  - Inappropriate schedule of drug administration [Unknown]

NARRATIVE: CASE EVENT DATE: 20150724
